FAERS Safety Report 12495840 (Version 2)
Quarter: 2016Q2

REPORT INFORMATION
  Report Type: Report from Study
  Country: CA (occurrence: CA)
  Receive Date: 20160624
  Receipt Date: 20160630
  Transmission Date: 20160815
  Serious: Yes (Other)
  Sender: FDA-Public Use
  Company Number: CA-JNJFOC-20160507885

PATIENT
  Age: 33 Year
  Sex: Male
  Weight: 86 kg

DRUGS (5)
  1. REMICADE [Suspect]
     Active Substance: INFLIXIMAB
     Indication: CROHN^S DISEASE
     Dosage: 17 TH INFUSION
     Route: 042
  2. REMICADE [Suspect]
     Active Substance: INFLIXIMAB
     Indication: CROHN^S DISEASE
     Dosage: 17 INFUSIONS
     Route: 042
     Dates: start: 20141015
  3. VITAMINA B12 [Concomitant]
     Route: 065
  4. REMICADE [Suspect]
     Active Substance: INFLIXIMAB
     Indication: CROHN^S DISEASE
     Dosage: 18TH INFUSION
     Route: 042
     Dates: start: 20160623
  5. IRON [Concomitant]
     Active Substance: IRON
     Route: 065

REACTIONS (9)
  - Dry skin [Not Recovered/Not Resolved]
  - Nasal septum deviation [Not Recovered/Not Resolved]
  - Lung infection [Unknown]
  - Rhinitis allergic [Not Recovered/Not Resolved]
  - Abdominal pain [Recovered/Resolved]
  - Rhinitis [Recovering/Resolving]
  - Product use issue [Unknown]
  - Off label use [Unknown]
  - Nasal polyps [Not Recovered/Not Resolved]

NARRATIVE: CASE EVENT DATE: 20141015
